FAERS Safety Report 9402503 (Version 3)
Quarter: 2013Q3

REPORT INFORMATION
  Report Type: Report from Study
  Country: CA (occurrence: CA)
  Receive Date: 20130716
  Receipt Date: 20130910
  Transmission Date: 20140515
  Serious: Yes (Death, Hospitalization)
  Sender: FDA-Public Use
  Company Number: CA-CELGENEUS-028-21880-13071349

PATIENT
  Age: 71 Year
  Sex: Male
  Weight: 98 kg

DRUGS (37)
  1. REVLIMID [Suspect]
     Indication: PLASMA CELL MYELOMA
     Dosage: 25 MILLIGRAM
     Route: 048
     Dates: start: 20110512, end: 20130606
  2. DEXAMETHASONE [Suspect]
     Indication: PLASMA CELL MYELOMA
     Route: 065
     Dates: start: 20110512, end: 20120706
  3. DEXAMETHASONE [Suspect]
     Indication: PROPHYLAXIS
     Dosage: 20 MILLIGRAM
     Route: 065
     Dates: start: 20110512
  4. DEXAMETHASONE [Suspect]
     Route: 065
     Dates: start: 20120713, end: 20120804
  5. DEXAMETHASONE [Suspect]
     Route: 065
     Dates: start: 20120810, end: 20130607
  6. ACETAMINOPHEN [Concomitant]
     Indication: PAIN
     Route: 048
     Dates: start: 20110108
  7. ANACIN [Concomitant]
     Indication: PAIN
     Dosage: 3 TABLET
     Route: 048
     Dates: start: 20130507
  8. ASPIRIN [Concomitant]
     Indication: ANTICOAGULANT THERAPY
     Dosage: 81 TABLET
     Route: 048
     Dates: start: 20110511
  9. ASPIRIN [Concomitant]
     Indication: ANTIPLATELET THERAPY
     Dosage: 81 TABLET
     Route: 048
     Dates: start: 20120402
  10. ASPIRIN [Concomitant]
     Indication: THROMBOSIS PROPHYLAXIS
     Dosage: 81 TABLET
     Route: 048
     Dates: start: 20130320
  11. ATORVASTATIN [Concomitant]
     Indication: DYSLIPIDAEMIA
     Dosage: 10 MILLIGRAM
     Route: 048
     Dates: start: 20130403
  12. BENADRYL-DIPHENHYDRAMINE [Concomitant]
     Indication: RASH
     Dosage: 10 MILLIGRAM
     Route: 048
     Dates: start: 20110512
  13. BISOPROLOL [Concomitant]
     Indication: PROPHYLAXIS
     Dosage: 7.5 MILLIGRAM
     Route: 048
     Dates: start: 20120403
  14. CALCIUM [Concomitant]
     Indication: SUPPLEMENTATION THERAPY
     Dosage: 500 IU (INTERNATIONAL UNIT)
     Route: 048
     Dates: start: 200909
  15. CEFUROXIME [Concomitant]
     Indication: NASOPHARYNGITIS
     Dosage: 500 MILLIGRAM
     Route: 048
     Dates: start: 20110714
  16. CITALOPRAM HYRDOBROMIDE [Concomitant]
     Indication: DEPRESSION
     Dosage: 10 MILLIGRAM
     Route: 048
     Dates: start: 201003
  17. COLACE [Concomitant]
     Indication: CONSTIPATION
     Route: 048
     Dates: start: 2007
  18. DIGOXIN [Concomitant]
     Indication: CARDIAC DISORDER
     Dosage: .125 MILLIGRAM
     Route: 048
     Dates: start: 20120215
  19. DIGOXIN [Concomitant]
     Indication: ATRIAL FIBRILLATION
  20. EPREX [Concomitant]
     Indication: SUPPLEMENTATION THERAPY
     Dosage: 40000 UNIT
     Route: 058
     Dates: start: 20130320
  21. FUROSEMIDE [Concomitant]
     Indication: ATRIAL FIBRILLATION
     Dosage: 20 MILLIGRAM
     Route: 048
     Dates: start: 20120319
  22. FUROSEMIDE [Concomitant]
     Indication: OEDEMA
     Dosage: 20 MILLIGRAM
     Route: 048
     Dates: start: 20120319
  23. LACTULOSE [Concomitant]
     Indication: CONSTIPATION
     Route: 048
     Dates: start: 20121128
  24. LOSEC [Concomitant]
     Indication: PROPHYLAXIS AGAINST GASTROINTESTINAL ULCER
     Dosage: 20 MILLIGRAM
     Route: 048
     Dates: start: 20110511
  25. MORPHINE [Concomitant]
     Indication: MUSCULOSKELETAL CHEST PAIN
     Dosage: 10 MILLIGRAM
     Route: 048
     Dates: start: 20120730
  26. MULTIVITAMINS [Concomitant]
     Indication: SUPPLEMENTATION THERAPY
     Dosage: 1 TABLET
     Route: 048
     Dates: start: 201201
  27. NITRO SPRAY [Concomitant]
     Indication: CHEST PAIN
     Dosage: .4 MILLIGRAM
     Route: 048
     Dates: start: 20120215
  28. OMEPRAZOLE [Concomitant]
     Indication: PROPHYLAXIS OF NAUSEA AND VOMITING
     Dosage: 20 MILLIGRAM
     Route: 048
     Dates: start: 20111007
  29. OXYCOCET [Concomitant]
     Indication: PAIN
     Route: 048
     Dates: start: 20120313
  30. OXYCOCET [Concomitant]
     Dosage: 5-325 MG
     Route: 048
     Dates: start: 20111102
  31. PROBIOTIC CULTURES [Concomitant]
     Indication: SUPPLEMENTATION THERAPY
     Route: 048
     Dates: start: 20130507
  32. RHINARIS [Concomitant]
     Indication: EPISTAXIS
     Route: 045
     Dates: start: 20121128
  33. SENEKOT [Concomitant]
     Indication: CONSTIPATION
     Dosage: 1-2 TABLETS
     Route: 048
     Dates: start: 2006
  34. VITAMIN D [Concomitant]
     Indication: SUPPLEMENTATION THERAPY
     Dosage: 100 MILLIGRAM
     Route: 048
  35. VITAMIN D [Concomitant]
     Indication: BURSITIS
     Dosage: 200 IU (INTERNATIONAL UNIT)
     Route: 048
     Dates: start: 2010
  36. ZOPICLONE [Concomitant]
     Indication: INSOMNIA
     Dosage: 1 TABLET
     Route: 048
     Dates: start: 200703
  37. PERCOCET [Concomitant]
     Indication: PAIN
     Dosage: 5 -325MG
     Route: 048
     Dates: start: 20111102

REACTIONS (1)
  - Hepatic infection [Fatal]
